FAERS Safety Report 16895320 (Version 1)
Quarter: 2019Q4

REPORT INFORMATION
  Report Type: Spontaneous
  Country: US (occurrence: US)
  Receive Date: 20191008
  Receipt Date: 20191008
  Transmission Date: 20200122
  Serious: Yes (Other)
  Sender: FDA-Public Use
  Company Number: US-HORIZON-PEN-0875-2019

PATIENT
  Sex: Male

DRUGS (1)
  1. PENNSAID [Suspect]
     Active Substance: DICLOFENAC SODIUM
     Indication: NECK PAIN
     Dosage: 2 PUMPS BID
     Dates: start: 2019

REACTIONS (2)
  - Neck surgery [Unknown]
  - Off label use [Unknown]

NARRATIVE: CASE EVENT DATE: 20190927
